FAERS Safety Report 16046833 (Version 1)
Quarter: 2019Q1

REPORT INFORMATION
  Report Type: Spontaneous
  Country: US (occurrence: US)
  Receive Date: 20190307
  Receipt Date: 20190307
  Transmission Date: 20190418
  Serious: Yes (Other)
  Sender: FDA-Public Use
  Company Number: US-PFIZER INC-2017407853

PATIENT
  Sex: Male
  Weight: 86 kg

DRUGS (2)
  1. ENBREL [Suspect]
     Active Substance: ETANERCEPT
     Dosage: UNK UNK, WEEKLY
  2. METHOTREXATE SODIUM. [Suspect]
     Active Substance: METHOTREXATE SODIUM
     Indication: RHEUMATOID ARTHRITIS
     Dosage: UNK
     Route: 065
     Dates: start: 1997

REACTIONS (6)
  - Lower respiratory tract infection [Unknown]
  - Diabetic neuropathy [Unknown]
  - Type 2 diabetes mellitus [Unknown]
  - Skin ulcer [Unknown]
  - Intervertebral disc protrusion [Unknown]
  - Upper respiratory tract infection [Unknown]
